FAERS Safety Report 8556403-7 (Version None)
Quarter: 2012Q3

REPORT INFORMATION
  Report Type: 
  Country: None (occurrence: None)
  Receive Date: 20120801
  Receipt Date: 20120726
  Transmission Date: 20120928
  Serious: Yes (Hospitalization, Other)
  Sender: FDA-Public Use
  Company Number: PHEH2012US014184

PATIENT
  Sex: Male

DRUGS (6)
  1. PREDNISONE [Concomitant]
     Dosage: 30 MG, DAILY
     Route: 048
  2. PREDNISONE [Concomitant]
     Dosage: 10 MG, DAILY
     Route: 048
  3. MYFORTIC [Suspect]
     Indication: LIVER TRANSPLANT
     Dosage: 360 MG, BID
     Route: 048
     Dates: start: 20120709
  4. PROGRAF [Concomitant]
     Dosage: UNK UKN, UNK
  5. RAPAMUNE [Concomitant]
     Dosage: 1 DF, DAILY
  6. NEXIUM [Concomitant]
     Dosage: 1 DF, BID
     Route: 048

REACTIONS (24)
  - ENZYME LEVEL INCREASED [None]
  - LIVER TRANSPLANT REJECTION [None]
  - JAUNDICE [None]
  - HAEMORRHOIDS [None]
  - FATIGUE [None]
  - OCULAR ICTERUS [None]
  - CHROMATURIA [None]
  - BLOOD GLUCOSE INCREASED [None]
  - DEPRESSION [None]
  - TREMOR [None]
  - OEDEMA PERIPHERAL [None]
  - RED BLOOD CELL COUNT DECREASED [None]
  - PLATELET COUNT DECREASED [None]
  - CHILLS [None]
  - WHITE BLOOD CELL COUNT DECREASED [None]
  - HAEMOGLOBIN DECREASED [None]
  - PYREXIA [None]
  - LIVER FUNCTION TEST ABNORMAL [None]
  - BLOOD BICARBONATE DECREASED [None]
  - HAEMATOCRIT DECREASED [None]
  - RENAL FAILURE [None]
  - LYMPHOCYTE PERCENTAGE DECREASED [None]
  - NERVOUSNESS [None]
  - HEADACHE [None]
